FAERS Safety Report 9299954 (Version 1)
Quarter: 2013Q1

REPORT INFORMATION
  Report Type: Spontaneous
  Country: US (occurrence: None)
  Receive Date: 20130107
  Receipt Date: 20130107
  Transmission Date: 20140127
  Serious: No
  Sender: FDA-Public Use
  Company Number: PHHY2012US102752

PATIENT
  Age: 61 Year
  Sex: Female
  Weight: 61.2 kg

DRUGS (7)
  1. GILENYA [Suspect]
     Route: 048
     Dates: start: 2011
  2. CALTRATE (CALCIUM CARBONATE) [Concomitant]
  3. AMANTADINE (AMANTADINE) [Concomitant]
  4. MULTI-VOT (VITAMINS NOS) [Concomitant]
  5. LEXPRAO (ESCITALOPRAM OXALATE) [Concomitant]
  6. TERIPARATIDE (TERIPRARATIDE) [Concomitant]
  7. VITAMIN D CAPSULE [Concomitant]

REACTIONS (1)
  - Fall [None]
